FAERS Safety Report 18327789 (Version 1)
Quarter: 2020Q3

REPORT INFORMATION
  Report Type: Spontaneous
  Country: FI (occurrence: FI)
  Receive Date: 20200930
  Receipt Date: 20200930
  Transmission Date: 20201103
  Serious: Yes (Hospitalization, Other)
  Sender: FDA-Public Use
  Company Number: FI-AMGEN-FINSP2020158324

PATIENT
  Age: 68 Year
  Sex: Female

DRUGS (19)
  1. PRAMIPEXOLE ORION [Concomitant]
     Dosage: 88 UG, DAILY
     Route: 048
  2. LOSARTAN KRKA [LOSARTAN POTASSIUM] [Concomitant]
     Indication: HYPERTENSION
     Dosage: 50 MG, DAILY
     Route: 048
  3. PANADOL FORTE [PARACETAMOL] [Concomitant]
     Dosage: UNK UNK, AS NEEDED
     Route: 048
  4. PANTOPRAZOL KRKA [Concomitant]
     Active Substance: PANTOPRAZOLE
     Dosage: 160 MG, WEEKLY
     Route: 048
  5. OFTAGEL [Concomitant]
     Active Substance: CARBOMER
     Dosage: 4 GTT, DAILY
     Route: 048
  6. OXANEST [Concomitant]
     Active Substance: OXYCODONE HYDROCHLORIDE
     Indication: HEADACHE
     Dosage: UNK UNK, AS NEEDED
     Route: 042
  7. ONDANSETRON ACCORD [Concomitant]
     Active Substance: ONDANSETRON
     Dosage: UNK UNK, AS NEEDED
     Route: 042
  8. ARCOXIA [Concomitant]
     Active Substance: ETORICOXIB
     Dosage: UNK UNK, AS NEEDED
     Route: 048
  9. ATORVASTATIN KRKA [Concomitant]
     Active Substance: ATORVASTATIN
     Dosage: 10 MG, DAILY
     Route: 048
  10. MEDITHYROX [Concomitant]
     Dosage: UNK
     Route: 048
  11. PRIMPERAN [Concomitant]
     Active Substance: METOCLOPRAMIDE HYDROCHLORIDE
     Indication: NAUSEA
     Dosage: UNK UNK, AS NEEDED
     Route: 042
  12. CETIRIZIN?RATIOPHARM [Concomitant]
     Dosage: 10 MG, DAILY
     Route: 048
  13. DEXKETOPROFEN [DEXKETOPROFEN TROMETAMOL] [Concomitant]
     Active Substance: DEXKETOPROFEN TROMETAMOL
     Dosage: UNK UNK, AS NEEDED
     Route: 042
  14. HYDROCORTISON [HYDROCORTISONE] [Concomitant]
     Dosage: 30 MG, DAILY
     Route: 048
  15. ACICLOVIR PFIZER [Concomitant]
     Dosage: 600 MG, 3X/DAY
     Route: 042
  16. PANACOD [Concomitant]
     Active Substance: ACETAMINOPHEN\CODEINE PHOSPHATE
     Dosage: UNK UNK, AS NEEDED
     Route: 048
  17. ENBREL [Suspect]
     Active Substance: ETANERCEPT
     Indication: RHEUMATOID ARTHRITIS
     Dosage: 50 MG, WEEKLY
     Route: 058
     Dates: start: 2015, end: 20200901
  18. PRIMASPAN [Concomitant]
     Active Substance: ASPIRIN
     Dosage: 400 MG, WEEKLY
     Route: 048
  19. ARTELAC [HYPROMELLOSE] [Concomitant]
     Active Substance: HYPROMELLOSES
     Indication: DRY EYE
     Dosage: 2 GTT, DAILY
     Route: 047

REACTIONS (2)
  - Herpes zoster meningitis [Recovering/Resolving]
  - Herpes ophthalmic [Recovering/Resolving]

NARRATIVE: CASE EVENT DATE: 20200823
